FAERS Safety Report 20308968 (Version 1)
Quarter: 2022Q1

REPORT INFORMATION
  Report Type: Spontaneous
  Country: US (occurrence: None)
  Receive Date: 20220106
  Receipt Date: 20220106
  Transmission Date: 20220424
  Serious: Yes (Disabling, Other)
  Sender: FDA-Public Use
  Company Number: None

PATIENT
  Age: 26 Year
  Sex: Male
  Weight: 49.5 kg

DRUGS (1)
  1. CIPROFLOXACIN [Suspect]
     Active Substance: CIPROFLOXACIN
     Indication: Food poisoning
     Dosage: OTHER QUANTITY : 1 TABLET(S);?FREQUENCY : EVERY 12 HOURS;?
     Route: 048
     Dates: start: 20200316, end: 20200326

REACTIONS (16)
  - Weight decreased [None]
  - Gastrooesophageal reflux disease [None]
  - Duodenogastric reflux [None]
  - Muscle spasms [None]
  - Muscle twitching [None]
  - Muscular weakness [None]
  - Neck pain [None]
  - Intervertebral disc protrusion [None]
  - Intervertebral disc protrusion [None]
  - Intervertebral disc degeneration [None]
  - Tinnitus [None]
  - Tendon pain [None]
  - Fatigue [None]
  - Exercise tolerance decreased [None]
  - Asthenia [None]
  - Nausea [None]

NARRATIVE: CASE EVENT DATE: 20200501
